FAERS Safety Report 9522362 (Version 1)
Quarter: 2013Q1

REPORT INFORMATION
  Report Type: Spontaneous
  Country: US (occurrence: None)
  Receive Date: 20130305
  Receipt Date: 20130305
  Transmission Date: 20140127
  Serious: Yes (Other)
  Sender: FDA-Public Use
  Company Number: 163-21880-12032099

PATIENT
  Age: 55 Year
  Sex: Male

DRUGS (6)
  1. REVLIMID (LENALIDOMIDE) (CAPSULES) [Suspect]
     Indication: MYELOFIBROSIS
     Dosage: 10 MG, 21 IN 28 D, PO
     Route: 048
  2. HYDROXYUREA (HYDROXYCARBAMIDE) (UNKNOWN) [Concomitant]
  3. ASA (ACETYLSALICYLIC ACID) (UNKNOWN) [Concomitant]
  4. PREDNISONE (PREDINSONE) (UNKNOWN) [Concomitant]
  5. ALLOPURINOL (ALLOPURINOL) (UNKNOWN) [Concomitant]
  6. TERAZOSIN (TERAZOSIN) (UNKNOWN) [Concomitant]

REACTIONS (1)
  - Blood bilirubin increased [None]
